FAERS Safety Report 9522611 (Version 2)
Quarter: 2013Q4

REPORT INFORMATION
  Report Type: Report from Study
  Country: CA (occurrence: CA)
  Receive Date: 20130913
  Receipt Date: 20131016
  Transmission Date: 20140711
  Serious: No
  Sender: FDA-Public Use
  Company Number: CA-JNJFOC-20130905127

PATIENT
  Age: 51 Year
  Sex: Male
  Weight: 109.77 kg

DRUGS (12)
  1. REMICADE [Suspect]
     Indication: PSORIASIS
     Route: 042
     Dates: start: 20120413
  2. CRESTOR [Concomitant]
     Route: 065
  3. METHOTREXATE [Concomitant]
     Route: 048
  4. FOLIC ACID [Concomitant]
     Route: 048
  5. ADALAT [Concomitant]
     Route: 048
  6. ASA [Concomitant]
     Route: 048
  7. ALTACE [Concomitant]
     Route: 048
  8. HYDROCHLOROTHIAZIDE [Concomitant]
     Route: 048
  9. METFORMIN [Concomitant]
     Route: 048
  10. LANTUS [Concomitant]
     Route: 065
  11. NOVORAPID [Concomitant]
     Route: 065
  12. VICTOZA [Concomitant]
     Route: 065

REACTIONS (4)
  - Gallbladder disorder [Unknown]
  - Headache [Unknown]
  - Malaise [Unknown]
  - Cold sweat [Unknown]
